FAERS Safety Report 20585486 (Version 1)
Quarter: 2022Q1

REPORT INFORMATION
  Report Type: Report from Study
  Country: CO (occurrence: CO)
  Receive Date: 20220312
  Receipt Date: 20220312
  Transmission Date: 20220423
  Serious: Yes (Other)
  Sender: FDA-Public Use
  Company Number: CO-BAYER-2022A036307

PATIENT

DRUGS (3)
  1. EYLEA [Suspect]
     Active Substance: AFLIBERCEPT
     Indication: Age-related macular degeneration
     Dosage: 2 MG,BOTH EYES, 2 MG INTRAVITREALLY MONTHLY FOR 3 MONTHS, AND THEN EVERY 2 MONTHS
     Route: 031
     Dates: start: 20210810, end: 20211012
  2. EYLEA [Suspect]
     Active Substance: AFLIBERCEPT
     Dosage: 2 MG,BOTH EYES, 2 MG INTRAVITREALLY MONTHLY FOR 3 MONTHS, AND THEN EVERY 2 MONTHS
     Route: 031
     Dates: start: 20211012, end: 20211012
  3. EYLEA [Suspect]
     Active Substance: AFLIBERCEPT
     Dosage: 2 MG,BOTH EYES, 2 MG INTRAVITREALLY MONTHLY FOR 3 MONTHS, AND THEN EVERY 2 MONTHS
     Route: 031
     Dates: start: 20211216, end: 20211216

REACTIONS (1)
  - Eye operation [Unknown]

NARRATIVE: CASE EVENT DATE: 20211201
